FAERS Safety Report 9348305 (Version 2)
Quarter: 2013Q2

REPORT INFORMATION
  Report Type: Spontaneous
  Country: US (occurrence: US)
  Receive Date: 20130614
  Receipt Date: 20130621
  Transmission Date: 20140414
  Serious: Yes (Other)
  Sender: FDA-Public Use
  Company Number: US-PFIZER INC-2013176099

PATIENT
  Age: 56 Year
  Sex: Female
  Weight: 90.7 kg

DRUGS (1)
  1. ADVIL PM [Suspect]
     Dosage: TWO TABLETS, ONCE DAILY
     Route: 048

REACTIONS (10)
  - Intentional overdose [Unknown]
  - Swelling face [Unknown]
  - Generalised oedema [Unknown]
  - Skin tightness [Unknown]
  - Blister [Unknown]
  - Gingival blister [Unknown]
  - Muscle twitching [Unknown]
  - Feeling abnormal [Unknown]
  - Dyspnoea [Unknown]
  - Abdominal discomfort [Unknown]
